FAERS Safety Report 8239996-9 (Version None)
Quarter: 2012Q1

REPORT INFORMATION
  Report Type: 
  Country: None (occurrence: None)
  Receive Date: 20120309
  Receipt Date: 20100726
  Transmission Date: 20120608
  Serious: Yes (Other)
  Sender: FDA-Public Use
  Company Number: PHHY2010US48058

PATIENT
  Age: 41 Year
  Sex: Male

DRUGS (2)
  1. EXTAVIA [Suspect]
     Indication: MULTIPLE SCLEROSIS
     Dosage: 0.25 MG, QOD, SUBCUTANEOUS
     Route: 058
     Dates: start: 20100423
  2. GAMMAGARD [Concomitant]

REACTIONS (6)
  - SWELLING FACE [None]
  - MULTIPLE SCLEROSIS RELAPSE [None]
  - TREMOR [None]
  - PARAESTHESIA [None]
  - CENTRAL NERVOUS SYSTEM LESION [None]
  - INFLUENZA LIKE ILLNESS [None]
